FAERS Safety Report 6616271-7 (Version None)
Quarter: 2010Q1

REPORT INFORMATION
  Report Type: 
  Country: None (occurrence: None)
  Receive Date: 20100305
  Receipt Date: 20100219
  Transmission Date: 20100710
  Serious: Yes (Other)
  Sender: FDA-Public Use
  Company Number: DE-GENENTECH-298698

PATIENT

DRUGS (13)
  1. LUCENTIS [Suspect]
     Indication: MACULAR DEGENERATION
     Dosage: UNK
     Route: 031
     Dates: start: 20070831
  2. LUCENTIS [Suspect]
     Dosage: UNK
     Route: 031
     Dates: start: 20071005
  3. LUCENTIS [Suspect]
     Dosage: UNK
     Route: 031
     Dates: start: 20071105
  4. LUCENTIS [Suspect]
     Dosage: UNK
     Route: 031
     Dates: start: 20080402
  5. LUCENTIS [Suspect]
     Dosage: UNK
     Route: 031
     Dates: start: 20080507
  6. LUCENTIS [Suspect]
     Dosage: UNK
     Route: 031
     Dates: start: 20080611
  7. LUCENTIS [Suspect]
     Dosage: UNK
     Route: 031
     Dates: start: 20090819
  8. LUCENTIS [Suspect]
     Dosage: UNK
     Route: 031
     Dates: start: 20091009
  9. LUCENTIS [Suspect]
     Dosage: UNK
     Route: 031
     Dates: start: 20091113
  10. NAPHAZOLINE HCL [Concomitant]
     Indication: DRUG USE FOR UNKNOWN INDICATION
  11. DIGITALIS TAB [Concomitant]
     Indication: DRUG USE FOR UNKNOWN INDICATION
  12. ACETYLSALICYLIC ACID [Concomitant]
     Indication: DRUG USE FOR UNKNOWN INDICATION
     Dosage: 100 MG, UNK
  13. AVASTIN [Concomitant]
     Indication: DRUG USE FOR UNKNOWN INDICATION
     Dosage: UNK
     Dates: start: 20090512

REACTIONS (1)
  - CATARACT OPERATION [None]
